FAERS Safety Report 15113380 (Version 1)
Quarter: 2018Q3

REPORT INFORMATION
  Report Type: Spontaneous
  Country: IT (occurrence: IT)
  Receive Date: 20180706
  Receipt Date: 20180706
  Transmission Date: 20181010
  Serious: Yes (Other)
  Sender: FDA-Public Use
  Company Number: IT-TEVA-2018-IT-921478

PATIENT
  Age: 73 Year
  Sex: Male

DRUGS (10)
  1. TORVAST 40 MG COMPRESSE RIVESTITE CON FILM [Concomitant]
  2. RAMIPRIL. [Concomitant]
     Active Substance: RAMIPRIL
  3. LANSOX 30 MG CAPSULE RIGIDE [Concomitant]
  4. ACETYLSALICYLIC ACID [Concomitant]
     Active Substance: ASPIRIN
  5. BRILIQUE [Concomitant]
     Active Substance: TICAGRELOR
     Route: 048
  6. ZOLOFT COMPRESSE RIVESTITE CON FILM 100 MG [Concomitant]
  7. KANRENOL? 100 COMPRESSE [Concomitant]
     Active Substance: CANRENOATE POTASSIUM
     Route: 048
  8. TAMSULOSIN HYDROCHLORIDE. [Concomitant]
     Active Substance: TAMSULOSIN HYDROCHLORIDE
     Route: 048
  9. REPAGLINIDE. [Suspect]
     Active Substance: REPAGLINIDE
     Indication: TYPE 2 DIABETES MELLITUS
     Dosage: 3 MILLIGRAM DAILY;
     Route: 048
     Dates: start: 20171231, end: 20180101
  10. AVODART [Concomitant]
     Active Substance: DUTASTERIDE

REACTIONS (2)
  - Hypoglycaemia [Recovering/Resolving]
  - Loss of consciousness [Recovering/Resolving]

NARRATIVE: CASE EVENT DATE: 20180101
